FAERS Safety Report 22133718 (Version 1)
Quarter: 2023Q1

REPORT INFORMATION
  Report Type: Spontaneous
  Country: SE (occurrence: SE)
  Receive Date: 20230324
  Receipt Date: 20230324
  Transmission Date: 20230417
  Serious: Yes (Disabling, Other)
  Sender: FDA-Public Use
  Company Number: SE-UCBSA-2023014944

PATIENT
  Sex: Female

DRUGS (1)
  1. EVENITY [Suspect]
     Active Substance: ROMOSOZUMAB-AQQG
     Indication: Osteoporosis postmenopausal
     Dosage: 210 MILLIGRAM, QMO
     Route: 065
     Dates: start: 2022, end: 2023

REACTIONS (7)
  - Spinal fracture [Unknown]
  - Immobile [Unknown]
  - Hip fracture [Unknown]
  - Back pain [Unknown]
  - Surgery [Unknown]
  - Bone density decreased [Unknown]
  - Drug ineffective [Unknown]
